FAERS Safety Report 5151482-1 (Version None)
Quarter: 2006Q4

REPORT INFORMATION
  Report Type: 
  Country: None (occurrence: None)
  Receive Date: 20061115
  Receipt Date: 20061026
  Transmission Date: 20070319
  Serious: Yes (Other)
  Sender: FDA-Public Use
  Company Number: US-SANOFI-SYNTHELABO-F03200600235

PATIENT

DRUGS (2)
  1. CAPECITABINE [Suspect]
     Dosage: TWICE DAILY ON DAYS 1-14 OF A THREE WEEK CYCLE
     Route: 048
  2. OXALIPLATIN [Suspect]
     Indication: COLORECTAL CANCER
     Route: 042

REACTIONS (1)
  - ANGINA PECTORIS [None]
